FAERS Safety Report 25906705 (Version 2)
Quarter: 2025Q4

REPORT INFORMATION
  Report Type: Spontaneous
  Country: BA (occurrence: BA)
  Receive Date: 20251010
  Receipt Date: 20251114
  Transmission Date: 20260118
  Serious: Yes (Hospitalization, Other)
  Sender: PFIZER
  Company Number: BA-PFIZER INC-PV202500120067

PATIENT
  Age: 76 Year
  Sex: Female
  Weight: 78.5 kg

DRUGS (8)
  1. LORLATINIB [Suspect]
     Active Substance: LORLATINIB
     Indication: Lung adenocarcinoma
     Dosage: ON THE 7TH CYCLE
     Route: 048
     Dates: start: 20250429
  2. ACETYLSALICYLIC ACID (BOSPYRIN) [Concomitant]
     Indication: Cardiomyopathy
     Dosage: 100 MG, 1X/DAY
  3. AMLODIPINE\INDAPAMIDE\PERINDOPRIL [Concomitant]
     Active Substance: AMLODIPINE\INDAPAMIDE\PERINDOPRIL
     Indication: Hypertension
     Dosage: 4/1.25/5 MG, 2X/DAY
  4. CARDIOL [CARVEDILOL] [Concomitant]
     Indication: Hypertension
     Dosage: 5 MG, 1X/DAY
  5. LANIBOS [Concomitant]
     Indication: Cardiomyopathy
     Dosage: 0.25 MG EVERY SECOND DAY
  6. LEVOTHYROXINE SODIUM [Concomitant]
     Active Substance: LEVOTHYROXINE SODIUM
     Indication: Hypothyroidism
     Dosage: 100 UG, 1X/DAY
  7. LODIX [Concomitant]
     Indication: Cardiomyopathy
     Dosage: 40 MG ON EVERY 3RD DAY
  8. ROSIX [ROSUVASTATIN CALCIUM] [Concomitant]
     Indication: Dyslipidaemia
     Dosage: 20 MG, 1X/DAY

REACTIONS (3)
  - Hallucination [Recovered/Resolved]
  - Oedema [Recovered/Resolved]
  - Hyperlipidaemia [Recovered/Resolved]

NARRATIVE: CASE EVENT DATE: 20250501
